FAERS Safety Report 23330915 (Version 2)
Quarter: 2023Q4

REPORT INFORMATION
  Report Type: Report from Study
  Country: US (occurrence: US)
  Receive Date: 20231222
  Receipt Date: 20231228
  Transmission Date: 20240109
  Serious: No
  Sender: FDA-Public Use
  Company Number: US-SA-SAC20231215001383

PATIENT
  Age: 87 Year
  Sex: Female

DRUGS (2)
  1. DUPILUMAB [Suspect]
     Active Substance: DUPILUMAB
     Indication: Neurodermatitis
     Dosage: 600 MG, 1X
     Route: 058
     Dates: start: 202310, end: 202310
  2. DUPILUMAB [Suspect]
     Active Substance: DUPILUMAB
     Indication: Dermatitis atopic
     Dosage: 300 MG, QOW
     Route: 058
     Dates: start: 2023

REACTIONS (5)
  - Skin wound [Unknown]
  - Skin haemorrhage [Unknown]
  - Erythema [Unknown]
  - Pruritus [Not Recovered/Not Resolved]
  - Neurodermatitis [Unknown]

NARRATIVE: CASE EVENT DATE: 20230101
